FAERS Safety Report 15411663 (Version 1)
Quarter: 2018Q3

REPORT INFORMATION
  Report Type: Spontaneous
  Country: US (occurrence: US)
  Receive Date: 20180920
  Receipt Date: 20180920
  Transmission Date: 20181010
  Serious: Yes (Hospitalization)
  Sender: FDA-Public Use
  Company Number: None

PATIENT
  Age: 60 Year
  Sex: Female

DRUGS (11)
  1. LAMICTAL [Concomitant]
     Active Substance: LAMOTRIGINE
  2. MORPHINE [Concomitant]
     Active Substance: MORPHINE
  3. OXYCODONE [Concomitant]
     Active Substance: OXYCODONE
  4. AZITHROMYCIN ANHYDROUS. [Concomitant]
     Active Substance: AZITHROMYCIN ANHYDROUS
  5. DULOXETINE. [Concomitant]
     Active Substance: DULOXETINE
  6. COSENTYX [Suspect]
     Active Substance: SECUKINUMAB
     Indication: PSORIATIC ARTHROPATHY
     Route: 058
     Dates: start: 20180418
  7. OXAZEPAM. [Concomitant]
     Active Substance: OXAZEPAM
  8. OXYCODONE [Concomitant]
     Active Substance: OXYCODONE
  9. NEXIUM [Concomitant]
     Active Substance: ESOMEPRAZOLE MAGNESIUM
  10. METYYLPRED [Concomitant]
  11. IPRATROPIUM/ SOL ALBUTEROL [Concomitant]
     Active Substance: ALBUTEROL\IPRATROPIUM BROMIDE

REACTIONS (1)
  - Hospitalisation [None]
